FAERS Safety Report 4742683-2 (Version None)
Quarter: 2005Q3

REPORT INFORMATION
  Report Type: 
  Country: None (occurrence: None)
  Receive Date: 20050811
  Receipt Date: 20050803
  Transmission Date: 20060218
  Serious: Yes (Disabling, Other)
  Sender: FDA-Public Use
  Company Number: US-JNJFOC-20050601449

PATIENT
  Sex: Female

DRUGS (5)
  1. LEVAQUIN [Suspect]
     Indication: BRONCHITIS
     Route: 048
  2. ALBUTEROL [Concomitant]
     Indication: BRONCHITIS
     Route: 045
  3. INTAB DM [Concomitant]
  4. INTAB DM [Concomitant]
  5. INTAB DM [Concomitant]

REACTIONS (7)
  - ALOPECIA [None]
  - ARTHRALGIA [None]
  - BACK INJURY [None]
  - BACK PAIN [None]
  - HYPOAESTHESIA [None]
  - MIGRAINE [None]
  - TENDONITIS [None]
